FAERS Safety Report 16759246 (Version 2)
Quarter: 2019Q3

REPORT INFORMATION
  Report Type: Spontaneous
  Country: US (occurrence: US)
  Receive Date: 20190830
  Receipt Date: 20190909
  Transmission Date: 20191005
  Serious: Yes (Hospitalization, Other)
  Sender: FDA-Public Use
  Company Number: US-009507513-1811USA004987

PATIENT
  Sex: Female

DRUGS (7)
  1. SODIUM BICARBONATE. [Concomitant]
     Active Substance: SODIUM BICARBONATE
     Dosage: 2 MG, UNK
  2. AMLODIPINE [Concomitant]
     Active Substance: AMLODIPINE BESYLATE
     Indication: HYPERTENSION
     Dosage: 10 MG, UNK
  3. STERILE DILUENT (WATER) [Suspect]
     Active Substance: WATER
     Dosage: UNK
     Route: 058
     Dates: start: 20151106, end: 20151106
  4. ZOSTAVAX [Suspect]
     Active Substance: VARICELLA-ZOSTER VIRUS STRAIN OKA/MERCK LIVE ANTIGEN
     Indication: PROPHYLAXIS
     Dosage: .65 MILLILITER
     Route: 058
     Dates: start: 20151106
  5. ATORVASTATIN [Concomitant]
     Active Substance: ATORVASTATIN
     Indication: BLOOD CHOLESTEROL INCREASED
     Dosage: 40 MG, UNK
  6. METOPROLOL. [Concomitant]
     Active Substance: METOPROLOL
     Indication: HYPERTENSION
     Dosage: 100 MG, UNK
  7. ALENDRONATE SODIUM. [Concomitant]
     Active Substance: ALENDRONATE SODIUM
     Indication: OSTEOPOROSIS
     Dosage: 70 MG, UNK

REACTIONS (30)
  - Vaccination failure [Not Recovered/Not Resolved]
  - Deafness bilateral [Unknown]
  - Hypertensive nephropathy [Unknown]
  - Vitamin D deficiency [Unknown]
  - Post herpetic neuralgia [Unknown]
  - Musculoskeletal pain [Unknown]
  - Obesity [Unknown]
  - Insomnia [Unknown]
  - Sleep apnoea syndrome [Unknown]
  - Osteoarthritis [Unknown]
  - Bronchitis chronic [Unknown]
  - Chest pain [Unknown]
  - Intraocular lens implant [Unknown]
  - Paraesthesia [Unknown]
  - Intervertebral disc displacement [Unknown]
  - Rhinitis allergic [Unknown]
  - Vitreous degeneration [Unknown]
  - Major depression [Unknown]
  - Constipation [Unknown]
  - Diabetic nephropathy [Unknown]
  - Chronic kidney disease [Unknown]
  - Cervical radiculopathy [Unknown]
  - Onychomycosis [Unknown]
  - Cervical spinal stenosis [Unknown]
  - Herpes zoster [Not Recovered/Not Resolved]
  - Neck pain [Unknown]
  - Dry eye [Unknown]
  - Macular fibrosis [Unknown]
  - Body mass index abnormal [Unknown]
  - Hyperlipidaemia [Unknown]

NARRATIVE: CASE EVENT DATE: 20151120
